FAERS Safety Report 6676625-X (Version None)
Quarter: 2010Q2

REPORT INFORMATION
  Report Type: 
  Country: None (occurrence: None)
  Receive Date: 20100412
  Receipt Date: 20100401
  Transmission Date: 20101027
  Serious: Yes (Other)
  Sender: FDA-Public Use
  Company Number: PHHY2010JP18768

PATIENT
  Age: 47 Year
  Sex: Female

DRUGS (3)
  1. OCTREOTIDE ACETATE [Suspect]
     Indication: ACROMEGALY
  2. PEGVISOMANT [Concomitant]
     Dosage: 20 MG, UNK
  3. OCTREOTIDE ACETATE [Concomitant]
     Dosage: 20 MG, UNK

REACTIONS (4)
  - BRADYCARDIA [None]
  - CONDITION AGGRAVATED [None]
  - CRANIOTOMY [None]
  - PITUITARY TUMOUR REMOVAL [None]
